FAERS Safety Report 25190704 (Version 1)
Quarter: 2025Q2

REPORT INFORMATION
  Report Type: Spontaneous
  Country: CN (occurrence: CN)
  Receive Date: 20250411
  Receipt Date: 20250411
  Transmission Date: 20250717
  Serious: Yes (Other)
  Sender: ALEXION PHARMACEUTICALS
  Company Number: CN-AstraZeneca-CH-00842161A

PATIENT
  Age: 64 Year

DRUGS (3)
  1. TAGRISSO [Suspect]
     Active Substance: OSIMERTINIB
     Indication: Lung adenocarcinoma
  2. PEMETREXED [Concomitant]
     Active Substance: PEMETREXED
     Indication: Lung adenocarcinoma
     Route: 065
  3. NEDAPLATIN [Concomitant]
     Active Substance: NEDAPLATIN
     Indication: Lung adenocarcinoma
     Route: 065

REACTIONS (1)
  - Drug resistance [Unknown]
